FAERS Safety Report 7918356-1 (Version None)
Quarter: 2011Q4

REPORT INFORMATION
  Report Type: 
  Country: None (occurrence: None)
  Receive Date: 20111116
  Receipt Date: 20111108
  Transmission Date: 20120403
  Serious: Yes (Hospitalization, Other)
  Sender: FDA-Public Use
  Company Number: US-ELI_LILLY_AND_COMPANY-US201109006744

PATIENT
  Sex: Male
  Weight: 97.052 kg

DRUGS (2)
  1. TAXOTERE [Concomitant]
     Indication: NON-SMALL CELL LUNG CANCER
     Dosage: UNK
     Dates: start: 20110301, end: 20110401
  2. GEMZAR [Suspect]
     Indication: LUNG NEOPLASM MALIGNANT
     Dosage: 1000 MG/M2, DAY 1, 8, 15 EVERY 4 WEEKS
     Route: 042
     Dates: start: 20101207, end: 20110118

REACTIONS (7)
  - PULMONARY CONGESTION [None]
  - THROMBOSIS [None]
  - NEOPLASM PROGRESSION [None]
  - MALAISE [None]
  - WHEEZING [None]
  - COUGH [None]
  - DYSPNOEA [None]
